FAERS Safety Report 13102729 (Version 3)
Quarter: 2017Q4

REPORT INFORMATION
  Report Type: Spontaneous
  Country: ES (occurrence: ES)
  Receive Date: 20170110
  Receipt Date: 20171222
  Transmission Date: 20180320
  Serious: Yes (Life-Threatening, Hospitalization, Other)
  Sender: FDA-Public Use
  Company Number: US-ALLERGAN-1700589US

PATIENT
  Age: 7 Year
  Sex: Male

DRUGS (3)
  1. SALBUTAMOL [Interacting]
     Active Substance: ALBUTEROL
     Indication: ASTHMA
     Dosage: UNK UNK, Q8HR
     Route: 065
  2. TIMOLOL MALEATE. [Interacting]
     Active Substance: TIMOLOL MALEATE
     Indication: GLAUCOMA
  3. TIMOLOL MALEATE. [Suspect]
     Active Substance: TIMOLOL MALEATE
     Indication: INTRAOCULAR PRESSURE INCREASED
     Dosage: UNK, UNKNOWN
     Route: 047
     Dates: end: 20130214

REACTIONS (6)
  - Contraindication to medical treatment [Unknown]
  - Loss of consciousness [Recovered/Resolved]
  - Coma scale abnormal [Recovered/Resolved]
  - Asthma [Recovered/Resolved]
  - Drug interaction [Recovered/Resolved]
  - Drug dose omission [Unknown]

NARRATIVE: CASE EVENT DATE: 20130214
